FAERS Safety Report 5822192-X (Version None)
Quarter: 2008Q3

REPORT INFORMATION
  Report Type: 
  Country: None (occurrence: None)
  Receive Date: 20080722
  Receipt Date: 20080722
  Transmission Date: 20090109
  Serious: No
  Sender: FDA-Public Use
  Company Number: None

PATIENT
  Age: 22 Year
  Sex: Male

DRUGS (1)
  1. PENICILLIN VK [Suspect]
     Indication: DENTAL OPERATION
     Dosage: 500MG X1 PO
     Route: 048
     Dates: start: 20080706

REACTIONS (1)
  - RASH [None]
